FAERS Safety Report 15508230 (Version 1)
Quarter: 2018Q4

REPORT INFORMATION
  Report Type: Spontaneous
  Country: US (occurrence: US)
  Receive Date: 20181016
  Receipt Date: 20181016
  Transmission Date: 20190205
  Serious: No
  Sender: FDA-Public Use
  Company Number: US-SA-2018SA286130

PATIENT
  Age: 80 Year
  Sex: Female

DRUGS (4)
  1. SOLIQUA 100/33 [Suspect]
     Active Substance: INSULIN GLARGINE\LIXISENATIDE
     Indication: TYPE 1 DIABETES MELLITUS
     Dosage: 15 IU, QD
  2. NOVOLOG [Concomitant]
     Active Substance: INSULIN ASPART
  3. CELEBREX [Concomitant]
     Active Substance: CELECOXIB
  4. ZOLPIDEM TARTRATE. [Concomitant]
     Active Substance: ZOLPIDEM TARTRATE

REACTIONS (5)
  - Dry throat [Unknown]
  - Blood glucose abnormal [Unknown]
  - Blood glucose fluctuation [Unknown]
  - Dysphagia [Unknown]
  - Dry mouth [Unknown]
